FAERS Safety Report 9200644 (Version 1)
Quarter: 2013Q1

REPORT INFORMATION
  Report Type: Spontaneous
  Country: US (occurrence: US)
  Receive Date: 20130330
  Receipt Date: 20130330
  Transmission Date: 20140127
  Serious: Yes (Hospitalization, Other)
  Sender: FDA-Public Use
  Company Number: US-PFIZER INC-GBWYE788428MAY04

PATIENT
  Age: 61 Year
  Sex: Female

DRUGS (9)
  1. IBUPROFEN [Suspect]
     Indication: PRODUCT USED FOR UNKNOWN INDICATION
     Dosage: UNK
     Route: 048
  2. METFORMIN HCL [Suspect]
     Indication: TYPE 2 DIABETES MELLITUS
     Dosage: UNK
     Route: 048
  3. LISINOPRIL [Interacting]
     Indication: MYOCARDIAL INFARCTION
     Dosage: UNK
     Route: 048
  4. ASPIRIN [Concomitant]
     Dosage: UNK
     Route: 048
  5. AMLODIPINE [Concomitant]
     Dosage: UNK
  6. ATENOLOL [Concomitant]
     Dosage: UNK
     Route: 048
  7. CLOPIDOGREL [Concomitant]
     Dosage: UNK
  8. NATEGLINIDE [Concomitant]
     Dosage: UNK
  9. SILVER NITRATE [Concomitant]
     Dosage: UNK

REACTIONS (8)
  - Pancreatitis [Recovered/Resolved]
  - Renal failure acute [Recovered/Resolved]
  - Lactic acidosis [Recovered/Resolved]
  - Drug interaction [Unknown]
  - Hypotension [Unknown]
  - Liver function test abnormal [Recovered/Resolved]
  - Blood creatinine increased [Recovered/Resolved]
  - Renal failure [Recovered/Resolved]
